FAERS Safety Report 20769232 (Version 1)
Quarter: 2022Q2

REPORT INFORMATION
  Report Type: Spontaneous
  Country: US (occurrence: None)
  Receive Date: 20220429
  Receipt Date: 20220429
  Transmission Date: 20220720
  Serious: Yes (Hospitalization)
  Sender: FDA-Public Use
  Company Number: None

PATIENT
  Age: 20 Year
  Sex: Male
  Weight: 57.7 kg

DRUGS (7)
  1. CYCLOPHOSPHAMIDE [Suspect]
     Active Substance: CYCLOPHOSPHAMIDE
     Dates: end: 20220325
  2. CYTARABINE [Suspect]
     Active Substance: CYTARABINE
     Dates: end: 20220404
  3. MERCAPTOPURINE [Suspect]
     Active Substance: MERCAPTOPURINE
     Dates: end: 20220407
  4. METHOTREXATE [Suspect]
     Active Substance: METHOTREXATE
     Dates: end: 20220310
  5. ONCASPAR [Suspect]
     Active Substance: PEGASPARGASE
     Dates: end: 20220408
  6. RITUXIMAB [Suspect]
     Active Substance: RITUXIMAB
     Dates: end: 20220401
  7. VINCRISTINE SULFATE [Suspect]
     Active Substance: VINCRISTINE SULFATE
     Dates: end: 20220415

REACTIONS (3)
  - Haematochezia [None]
  - Abdominal pain [None]
  - Haemoglobin decreased [None]

NARRATIVE: CASE EVENT DATE: 20220420
